FAERS Safety Report 26175309 (Version 1)
Quarter: 2025Q4

REPORT INFORMATION
  Report Type: Report from Study
  Country: US (occurrence: US)
  Receive Date: 20251218
  Receipt Date: 20251218
  Transmission Date: 20260118
  Serious: Yes (Hospitalization, Other)
  Sender: MALLINCKRODT
  Company Number: US-MALLINCKRODT-MNK202507835

PATIENT
  Sex: Female

DRUGS (3)
  1. CORTICOTROPIN [Suspect]
     Active Substance: CORTICOTROPIN
     Indication: Systemic lupus erythematosus
     Dosage: 80 UNITS
     Route: 058
     Dates: start: 20150211
  2. ELIQUIS [Concomitant]
     Active Substance: APIXABAN
     Dosage: UNKNOWN
  3. ELIQUIS [Concomitant]
     Active Substance: APIXABAN
     Dosage: UNKNOWN (RESTARTED)

REACTIONS (11)
  - Thyroid disorder [Unknown]
  - Loss of consciousness [Unknown]
  - Seizure [Unknown]
  - Blood pressure increased [Unknown]
  - Respiratory rate increased [Unknown]
  - Dysphemia [Unknown]
  - Dyspnoea [Unknown]
  - Exertional headache [Unknown]
  - Headache [Unknown]
  - Asthenia [Unknown]
  - Fatigue [Unknown]
